FAERS Safety Report 10488065 (Version 2)
Quarter: 2014Q4

REPORT INFORMATION
  Report Type: Report from Study
  Country: US (occurrence: US)
  Receive Date: 20141001
  Receipt Date: 20141001
  Transmission Date: 20150528
  Serious: Yes (Hospitalization, Other)
  Sender: FDA-Public Use
  Company Number: US-ALEXION PHARMACEUTICALS INC-A200800758

PATIENT
  Sex: Female

DRUGS (1)
  1. SOLIRIS [Suspect]
     Active Substance: ECULIZUMAB
     Indication: PAROXYSMAL NOCTURNAL HAEMOGLOBINURIA
     Dosage: UNK
     Route: 042

REACTIONS (15)
  - Platelet count decreased [Unknown]
  - Haemoglobin decreased [Unknown]
  - Blood lactate dehydrogenase increased [Unknown]
  - Tenderness [Unknown]
  - Sepsis [Unknown]
  - Pyrexia [Unknown]
  - Pseudomonas infection [Unknown]
  - Vulvovaginal candidiasis [Unknown]
  - Anal candidiasis [Unknown]
  - Myalgia [Unknown]
  - Neutropenia [Unknown]
  - Packed red blood cell transfusion [Unknown]
  - Fatigue [Unknown]
  - Chills [Unknown]
  - Burning sensation [Unknown]

NARRATIVE: CASE EVENT DATE: 20090404
